FAERS Safety Report 6307244-2 (Version None)
Quarter: 2009Q3

REPORT INFORMATION
  Report Type: 
  Country: None (occurrence: None)
  Receive Date: 20090812
  Receipt Date: 20090812
  Transmission Date: 20100115
  Serious: Yes (Hospitalization)
  Sender: FDA-Public Use
  Company Number: None

PATIENT
  Age: 63 Year
  Sex: Female
  Weight: 88 kg

DRUGS (2)
  1. GAMUNEX [Suspect]
     Indication: MYASTHENIA GRAVIS
     Dosage: 30 GRAMS Q MONTHLY X 2 DAYS IV DRIP
     Route: 041
     Dates: start: 20090730, end: 20090730
  2. GAMUNEX [Suspect]

REACTIONS (1)
  - DRUG HYPERSENSITIVITY [None]
